FAERS Safety Report 13503620 (Version 1)
Quarter: 2017Q2

REPORT INFORMATION
  Report Type: Spontaneous
  Country: US (occurrence: US)
  Receive Date: 20170502
  Receipt Date: 20170502
  Transmission Date: 20170830
  Serious: Yes (Other)
  Sender: FDA-Public Use
  Company Number: US-LPDUSPRD-20170515

PATIENT
  Age: 56 Year
  Sex: Female
  Weight: 88 kg

DRUGS (4)
  1. LIDOCAINE HCL INJECTION, USP (0517-9402-01) [Suspect]
     Active Substance: LIDOCAINE HYDROCHLORIDE
     Dosage: 3ML OF 1.5%
     Route: 050
  2. EPINEPHRINE INJECTION, USP (1071-25) [Suspect]
     Active Substance: EPINEPHRINE
     Dosage: 1:200000
     Route: 050
  3. FENTANYL. [Concomitant]
     Active Substance: FENTANYL
     Dosage: 100 MCG
     Route: 042
  4. MIDAZOLAM [Concomitant]
     Active Substance: MIDAZOLAM HYDROCHLORIDE
     Dosage: 2 MG
     Route: 042

REACTIONS (5)
  - Movement disorder [Unknown]
  - Dyspnoea [Unknown]
  - Sensory loss [Unknown]
  - Blood pressure decreased [Unknown]
  - Nausea [Unknown]
